FAERS Safety Report 5078331-4 (Version None)
Quarter: 2006Q3

REPORT INFORMATION
  Report Type: 
  Country: None (occurrence: None)
  Receive Date: 20060811
  Receipt Date: 20060724
  Transmission Date: 20061208
  Serious: Yes (Hospitalization)
  Sender: FDA-Public Use
  Company Number: IT-ROCHE-456475

PATIENT
  Age: 84 Year
  Sex: Male

DRUGS (2)
  1. ROCEPHIN [Suspect]
     Dosage: FORM REPORTED AS VIAL.
     Route: 042
     Dates: start: 20060628, end: 20060705
  2. ALLOPURINOL [Concomitant]
     Route: 048
     Dates: start: 20060629, end: 20060706

REACTIONS (3)
  - ERYTHEMA [None]
  - PETECHIAE [None]
  - PRURITUS [None]
